FAERS Safety Report 6893753-4 (Version None)
Quarter: 2010Q3

REPORT INFORMATION
  Report Type: 
  Country: None (occurrence: None)
  Receive Date: 20100802
  Receipt Date: 20100726
  Transmission Date: 20110219
  Serious: Yes (Hospitalization)
  Sender: FDA-Public Use
  Company Number: US-BIOGENIDEC-2010BI021919

PATIENT
  Age: 41 Year
  Sex: Female

DRUGS (4)
  1. TYSABRI [Suspect]
     Indication: MULTIPLE SCLEROSIS
     Route: 042
     Dates: start: 20080718
  2. FENTANYL [Concomitant]
     Route: 062
  3. FENTANYL [Concomitant]
     Route: 062
  4. FENTANYL [Concomitant]
     Indication: GAIT DISTURBANCE
     Route: 062

REACTIONS (2)
  - GAIT DISTURBANCE [None]
  - OVERDOSE [None]
